FAERS Safety Report 8120420-1 (Version None)
Quarter: 2012Q1

REPORT INFORMATION
  Report Type: 
  Country: None (occurrence: None)
  Receive Date: 20120207
  Receipt Date: 20120130
  Transmission Date: 20120608
  Serious: Yes (Hospitalization)
  Sender: FDA-Public Use
  Company Number: JP-AMGEN-JPNCT2011064910

PATIENT
  Age: 72 Year
  Sex: Female
  Weight: 40 kg

DRUGS (6)
  1. BLINDED DENOSUMAB [Suspect]
     Indication: BREAST CANCER
     Dates: start: 20110804
  2. MAGMITT [Concomitant]
     Indication: CONSTIPATION
     Route: 048
     Dates: start: 20110714
  3. ALLEGRA [Concomitant]
     Indication: URTICARIA
     Dosage: UNKNOWN
     Route: 065
     Dates: start: 20111107, end: 20111107
  4. PETROLATUM SALICYLATE [Concomitant]
     Indication: HYPERKERATOSIS
     Dosage: UNKNOWN
     Route: 061
     Dates: start: 20111012
  5. BLINDED PLACEBO [Suspect]
     Indication: BREAST CANCER
     Dates: start: 20110804
  6. URSO 250 [Concomitant]
     Dosage: 100 MG, UNK
     Dates: start: 20111118

REACTIONS (1)
  - HEPATIC FUNCTION ABNORMAL [None]
